FAERS Safety Report 8418899-0 (Version None)
Quarter: 2012Q2

REPORT INFORMATION
  Report Type: 
  Country: None (occurrence: None)
  Receive Date: 20120530
  Receipt Date: 20120516
  Transmission Date: 20120825
  Serious: Yes (Death, Hospitalization)
  Sender: FDA-Public Use
  Company Number: 2012MA006442

PATIENT
  Age: 67 Year
  Sex: Male

DRUGS (4)
  1. CAPECITABINE [Suspect]
     Indication: GASTRIC CANCER
     Dosage: 5250 MG;PO
     Route: 048
     Dates: start: 20110922
  2. BEVACIZUMAB (BEVACIZUMAB) [Suspect]
     Indication: GASTRIC CANCER
     Dosage: 655 MG;IV
     Route: 042
     Dates: start: 20110922
  3. EPIRUBICIN HYDROCHLORIDE [Suspect]
     Indication: GASTRIC CANCER
     Dosage: 50 MG;IV
     Route: 042
     Dates: start: 20110922
  4. CISPLATIN [Suspect]
     Indication: GASTRIC CANCER
     Dosage: 120 MG;IV
     Route: 042
     Dates: start: 20110922

REACTIONS (5)
  - GASTROINTESTINAL ANASTOMOTIC LEAK [None]
  - DIAPHRAGMATIC HERNIA [None]
  - RESPIRATORY DISORDER [None]
  - ATRIAL FIBRILLATION [None]
  - POST PROCEDURAL HAEMORRHAGE [None]
